FAERS Safety Report 15887240 (Version 2)
Quarter: 2019Q1

REPORT INFORMATION
  Report Type: Spontaneous
  Country: BR (occurrence: BR)
  Receive Date: 20190130
  Receipt Date: 20190208
  Transmission Date: 20190417
  Serious: Yes (Death, Other)
  Sender: FDA-Public Use
  Company Number: BR-SAKK-2019SA022495AA

PATIENT
  Sex: Male

DRUGS (1)
  1. LANTUS [Suspect]
     Active Substance: INSULIN GLARGINE
     Route: 064

REACTIONS (5)
  - Fallot^s tetralogy [Unknown]
  - Foetal exposure during pregnancy [Unknown]
  - Death [Fatal]
  - Multiple congenital abnormalities [Unknown]
  - Premature baby death [Fatal]
